FAERS Safety Report 4422856-9 (Version None)
Quarter: 2004Q3

REPORT INFORMATION
  Report Type: 
  Country: None (occurrence: None)
  Receive Date: 20040804
  Receipt Date: 20040723
  Transmission Date: 20050211
  Serious: Yes (Life-Threatening, Hospitalization)
  Sender: FDA-Public Use
  Company Number: K200301915

PATIENT
  Age: 54 Year
  Sex: Female

DRUGS (26)
  1. ALTACE [Suspect]
     Indication: HYPERTENSION
     Dosage: 10 MG, QD, ORAL
     Route: 048
     Dates: end: 20031117
  2. ALTACE [Suspect]
     Indication: HYPERTENSION
     Dosage: 10 MG, QD, ORAL
     Route: 048
     Dates: start: 20031124, end: 20031205
  3. ENOXAPARIN SODIUM [Suspect]
     Indication: THROMBOSIS PROPHYLAXIS
     Dosage: 40 MG, QD, SUBCUTANEOUS
     Route: 058
     Dates: start: 20031117, end: 20031124
  4. ENOXAPARIN SODIUM [Suspect]
     Indication: THROMBOSIS PROPHYLAXIS
     Dosage: QD, SUBCUTANEOUS
     Route: 058
     Dates: start: 20031125
  5. VALSARTAN (VALSARTAN) [Suspect]
     Indication: HYPERTENSION
     Dosage: 160 MG, QD, ORAL
     Route: 048
     Dates: end: 20031117
  6. VALSARTAN (VALSARTAN) [Suspect]
     Indication: HYPERTENSION
     Dosage: 160 MG, QD, ORAL
     Route: 048
     Dates: start: 20031124, end: 20031205
  7. FENOFIBRATE [Suspect]
     Indication: HYPERCHOLESTEROLAEMIA
     Dosage: 200 MG, QD, ORAL
     Route: 048
     Dates: end: 20031117
  8. FENOFIBRATE [Suspect]
     Indication: HYPERCHOLESTEROLAEMIA
     Dosage: 200 MG, QD, ORAL
     Route: 048
     Dates: start: 20031124, end: 20031205
  9. HUMULIN (INSULIN HUMAN, INSULIN ISOPHANE, HUMAN BIOSYNTHETIC) [Suspect]
     Indication: DIABETES MELLITUS NON-INSULIN-DEPENDENT
     Dosage: VARIABLE U, SUBCUTANEOUS
     Route: 058
     Dates: start: 20031101, end: 20031206
  10. FUROSEMIDE [Concomitant]
  11. PULMICORT [Concomitant]
  12. ACETYLSALICYLIC ACID SRT [Concomitant]
  13. BRICANYL [Concomitant]
  14. LOSEC (OMEPRAZOLE) [Concomitant]
  15. EFFEXOR XR [Concomitant]
  16. OXAZEPAM [Concomitant]
  17. HYDROCHLOROTHIAZIDE [Concomitant]
  18. CLONIDINE [Concomitant]
  19. AMITRIPTYLINE HCL [Concomitant]
  20. VERAPAMIL [Concomitant]
  21. VENTOLIN [Concomitant]
  22. FLOVENT [Concomitant]
  23. SEREVENT [Concomitant]
  24. ATARAX [Concomitant]
  25. OXEZE (FORMOTEROL FUMARATE) [Concomitant]
  26. NIACIN [Concomitant]

REACTIONS (13)
  - ANAPHYLACTIC REACTION [None]
  - BRONCHOSPASM [None]
  - CARDIAC FAILURE CONGESTIVE [None]
  - CONDITION AGGRAVATED [None]
  - DISEASE RECURRENCE [None]
  - FLUID OVERLOAD [None]
  - FOOD ALLERGY [None]
  - HYPOGLYCAEMIA [None]
  - INADEQUATE DIET [None]
  - MEDICATION ERROR [None]
  - OXYGEN SATURATION DECREASED [None]
  - RENAL FAILURE ACUTE [None]
  - RHABDOMYOLYSIS [None]
